FAERS Safety Report 21635098 (Version 2)
Quarter: 2022Q4

REPORT INFORMATION
  Report Type: Spontaneous
  Country: DE (occurrence: DE)
  Receive Date: 20221123
  Receipt Date: 20221202
  Transmission Date: 20230113
  Serious: Yes (Death, Hospitalization, Other)
  Sender: FDA-Public Use
  Company Number: DE-GILEAD-2022-0606068

PATIENT
  Age: 45 Year
  Sex: Female
  Weight: 80 kg

DRUGS (6)
  1. YESCARTA [Suspect]
     Active Substance: AXICABTAGENE CILOLEUCEL
     Indication: Diffuse large B-cell lymphoma
     Dosage: 0.4-2X108 CELLS
     Route: 042
     Dates: start: 20221017, end: 20221017
  2. ANIDULAFUNGIN [Concomitant]
     Active Substance: ANIDULAFUNGIN
     Dosage: UNK
     Dates: start: 20221020
  3. MEROPENEM [Concomitant]
     Active Substance: MEROPENEM
     Dosage: UNK
     Dates: start: 20221018
  4. MEROPENEM [Concomitant]
     Active Substance: MEROPENEM
     Dosage: UNK
     Dates: start: 20220928, end: 20221007
  5. POSACONAZOLE [Concomitant]
     Active Substance: POSACONAZOLE
     Dosage: UNK
     Dates: start: 20221018
  6. BENDAMUSTINE;POLATUZUMAB VEDOTIN;RITUXIMAB [Concomitant]
     Indication: Neoplasm progression
     Dosage: UNK
     Dates: start: 20220920

REACTIONS (11)
  - Neoplasm progression [Fatal]
  - Blood lactate dehydrogenase increased [Fatal]
  - Immune effector cell-associated neurotoxicity syndrome [Not Recovered/Not Resolved]
  - Paraparesis [Not Recovered/Not Resolved]
  - Metabolic acidosis [Fatal]
  - Systemic candida [Fatal]
  - Sepsis [Fatal]
  - Lactic acidosis [Fatal]
  - Hypercalcaemia [Not Recovered/Not Resolved]
  - Hypertension [Not Recovered/Not Resolved]
  - Anisocoria [Not Recovered/Not Resolved]

NARRATIVE: CASE EVENT DATE: 20221017
